FAERS Safety Report 4523091-6 (Version None)
Quarter: 2004Q4

REPORT INFORMATION
  Report Type: 
  Country: None (occurrence: None)
  Receive Date: 20041207
  Receipt Date: 20041207
  Transmission Date: 20050328
  Serious: Yes (Other)
  Sender: FDA-Public Use
  Company Number: None

PATIENT
  Age: 72 Year
  Sex: Female
  Weight: 56.6996 kg

DRUGS (1)
  1. ZOMETA [Suspect]
     Dosage: 1 PER MONTH INFUSION

REACTIONS (6)
  - BONE DISORDER [None]
  - IMPAIRED HEALING [None]
  - NASAL SINUS DRAINAGE [None]
  - SPEECH DISORDER [None]
  - TOOTH IMPACTED [None]
  - TOOTH LOSS [None]
